FAERS Safety Report 10599155 (Version 1)
Quarter: 2014Q4

REPORT INFORMATION
  Report Type: Spontaneous
  Country: US (occurrence: US)
  Receive Date: 20141121
  Receipt Date: 20141121
  Transmission Date: 20150529
  Serious: No
  Sender: FDA-Public Use
  Company Number: US-VIVUS-2014V1000602

PATIENT
  Age: 69 Year
  Sex: Male
  Weight: 86.26 kg

DRUGS (1)
  1. STENDRA [Suspect]
     Active Substance: AVANAFIL
     Indication: ERECTILE DYSFUNCTION
     Dosage: 2 PILLS AS NEEDED
     Route: 048
     Dates: start: 201409

REACTIONS (1)
  - Drug ineffective [Not Recovered/Not Resolved]
